FAERS Safety Report 8065787-8 (Version None)
Quarter: 2012Q1

REPORT INFORMATION
  Report Type: 
  Country: None (occurrence: None)
  Receive Date: 20120124
  Receipt Date: 20120117
  Transmission Date: 20120608
  Serious: Yes (Death, Other)
  Sender: FDA-Public Use
  Company Number: CA-CELGENEUS-028-C5013-11103530

PATIENT
  Sex: Male
  Weight: 69.5 kg

DRUGS (17)
  1. THALIDOMIDE [Suspect]
     Dosage: 200 MILLIGRAM
     Route: 048
     Dates: end: 20111028
  2. MELPHALAN [Suspect]
     Indication: MULTIPLE MYELOMA
     Dosage: 8 MILLIGRAM
     Route: 065
     Dates: start: 20101112
  3. THALIDOMIDE [Suspect]
     Dosage: 200 MILLIGRAM
     Route: 048
     Dates: start: 20110902, end: 20110930
  4. PREDNISONE TAB [Suspect]
     Dosage: 150 MILLIGRAM
     Route: 065
     Dates: start: 20110902, end: 20110905
  5. PREDNISONE TAB [Suspect]
     Dosage: 150 MILLIGRAM
     Route: 065
     Dates: end: 20111028
  6. MELPHALAN [Suspect]
     Dosage: 2 MILLIGRAM
     Route: 065
     Dates: end: 20111028
  7. FRAGMIN [Concomitant]
     Indication: THROMBOSIS
     Dosage: 12.5 IU (INTERNATIONAL UNIT)
     Route: 058
     Dates: start: 20111014, end: 20111128
  8. CODEINE ELIXIR [Concomitant]
     Indication: COUGH
     Dosage: 5 MILLIGRAM
     Route: 048
     Dates: start: 20111021, end: 20111128
  9. PREDNISONE TAB [Suspect]
     Indication: MULTIPLE MYELOMA
     Dosage: 140 MILLIGRAM
     Route: 065
     Dates: start: 20101112
  10. HYDROMORPHONE HCL [Concomitant]
     Indication: PAIN
     Dosage: 2 MILLIGRAM
     Route: 048
     Dates: start: 20110506, end: 20111128
  11. TAMSULOSIN HCL [Concomitant]
     Dosage: .4 MILLIGRAM
     Route: 048
     Dates: start: 20070101, end: 20111128
  12. THALIDOMIDE [Suspect]
     Indication: MULTIPLE MYELOMA
     Dosage: 200 MILLIGRAM
     Route: 048
     Dates: start: 20101112
  13. KEFLEX [Concomitant]
     Indication: CELLULITIS
     Dosage: 500 MILLIGRAM
     Route: 048
     Dates: start: 20111013, end: 20111128
  14. NEUPOGEN [Concomitant]
     Dosage: 300 MICROGRAM
     Route: 058
     Dates: start: 20111003, end: 20111007
  15. RITALIN [Concomitant]
     Dosage: 10 MILLIGRAM
     Route: 048
     Dates: start: 20111021, end: 20111028
  16. MELPHALAN [Suspect]
     Dosage: 2 MILLIGRAM
     Route: 065
     Dates: start: 20110902, end: 20110905
  17. AVODART [Concomitant]
     Dosage: .5 MILLIGRAM
     Route: 048
     Dates: start: 20080101, end: 20111128

REACTIONS (1)
  - LUNG CANCER METASTATIC [None]
